FAERS Safety Report 6530927-6 (Version None)
Quarter: 2010Q1

REPORT INFORMATION
  Report Type: 
  Country: None (occurrence: None)
  Receive Date: 20100108
  Receipt Date: 20090720
  Transmission Date: 20100710
  Serious: No
  Sender: FDA-Public Use
  Company Number: A0790411A

PATIENT
  Age: 70 Year
  Sex: Male

DRUGS (5)
  1. LOVAZA [Suspect]
     Route: 048
     Dates: start: 20081101
  2. GLYBURIDE [Concomitant]
  3. MECLIZINE [Concomitant]
  4. PLAVIX [Concomitant]
     Dates: start: 20070901
  5. UNSPECIFIED MEDICATION [Concomitant]
     Route: 065
     Dates: start: 20090401

REACTIONS (7)
  - BACK PAIN [None]
  - DIZZINESS [None]
  - EYE INFLAMMATION [None]
  - HERPES ZOSTER [None]
  - NASAL DRYNESS [None]
  - PLEURITIC PAIN [None]
  - RASH ERYTHEMATOUS [None]
